FAERS Safety Report 7533849-7 (Version None)
Quarter: 2011Q2

REPORT INFORMATION
  Report Type: 
  Country: None (occurrence: None)
  Receive Date: 20110608
  Receipt Date: 20060522
  Transmission Date: 20111010
  Serious: Yes (Hospitalization)
  Sender: FDA-Public Use
  Company Number: PHHO2006PH08379

PATIENT
  Sex: Female

DRUGS (5)
  1. TEBOKAN [Concomitant]
  2. NOOTROPIL [Concomitant]
  3. ASPILETS [Concomitant]
  4. DIOVAN HCT [Suspect]
     Indication: HYPERTENSION
     Dosage: 92.5 MG, QD
     Route: 048
     Dates: start: 20040311
  5. CALCIBLOC [Concomitant]

REACTIONS (1)
  - CEREBROVASCULAR ACCIDENT [None]
